FAERS Safety Report 8125063-1 (Version None)
Quarter: 2012Q1

REPORT INFORMATION
  Report Type: 
  Country: None (occurrence: None)
  Receive Date: 20120209
  Receipt Date: 20120126
  Transmission Date: 20120608
  Serious: Yes (Death)
  Sender: FDA-Public Use
  Company Number: KH-ROCHE-1034923

PATIENT
  Age: 25 Year
  Sex: Female

DRUGS (3)
  1. DOBUTAMINE HCL [Concomitant]
  2. CEFTAZIDIM [Concomitant]
  3. TAMIFLU [Suspect]
     Indication: PRODUCT USED FOR UNKNOWN INDICATION

REACTIONS (6)
  - INFLUENZA [None]
  - RESPIRATORY FAILURE [None]
  - ASPARTATE AMINOTRANSFERASE ABNORMAL [None]
  - PNEUMONIA [None]
  - CARDIAC FAILURE [None]
  - ALANINE AMINOTRANSFERASE ABNORMAL [None]
